FAERS Safety Report 24193074 (Version 1)
Quarter: 2024Q3

REPORT INFORMATION
  Report Type: Other
  Country: PT (occurrence: PT)
  Receive Date: 20240809
  Receipt Date: 20240809
  Transmission Date: 20241016
  Serious: Yes (Hospitalization)
  Sender: ASPEN
  Company Number: PT-MLMSERVICE-20240724-PI141748-00117-1

PATIENT

DRUGS (2)
  1. DEXAMETHASONE [Suspect]
     Active Substance: DEXAMETHASONE
     Indication: Diffuse large B-cell lymphoma
     Dosage: 12 MG, QD, ON DAY 13
     Route: 042
  2. DEXAMETHASONE [Suspect]
     Active Substance: DEXAMETHASONE
     Dosage: ON DAY 18 [GRADUALLY REDUCED FOR 5 DAYS]
     Route: 042

REACTIONS (2)
  - Substance-induced psychotic disorder [Recovered/Resolved]
  - Mania [Recovered/Resolved]
